FAERS Safety Report 10198363 (Version 1)
Quarter: 2014Q2

REPORT INFORMATION
  Report Type: Spontaneous
  Country: US (occurrence: US)
  Receive Date: 20140527
  Receipt Date: 20140527
  Transmission Date: 20141212
  Serious: No
  Sender: FDA-Public Use
  Company Number: US-NOVEN-13US007906

PATIENT
  Age: 9 Year
  Sex: Male

DRUGS (4)
  1. DAYTRANA [Suspect]
     Indication: ATTENTION DEFICIT/HYPERACTIVITY DISORDER
     Dosage: 20 MG, UNKNOWN
     Route: 062
     Dates: start: 20131005
  2. DAYTRANA [Suspect]
     Dosage: 10 MG, UNKNOWN
     Route: 062
     Dates: start: 2010, end: 20131005
  3. DAYTRANA [Suspect]
     Dosage: 10 MG, UNK
  4. PROZAC GENERIC [Concomitant]
     Indication: ANXIETY
     Dosage: 1 TABLET, HS
     Route: 048
     Dates: start: 2013

REACTIONS (2)
  - Insomnia [Not Recovered/Not Resolved]
  - Incorrect drug administration duration [Recovered/Resolved]
